FAERS Safety Report 5253886-5 (Version None)
Quarter: 2007Q1

REPORT INFORMATION
  Report Type: 
  Country: None (occurrence: None)
  Receive Date: 20070227
  Receipt Date: 20070220
  Transmission Date: 20070707
  Serious: Yes (Disabling, Other)
  Sender: FDA-Public Use
  Company Number: 235846

PATIENT
  Age: 85 Year
  Sex: Female

DRUGS (6)
  1. LUCENTIS [Suspect]
     Indication: MACULAR DEGENERATION
     Dosage: INTRAVITREAL
     Dates: start: 20060720
  2. HYDROCHLOROTHIAZIDE [Concomitant]
  3. LOVASTATIN [Concomitant]
  4. PRILOSEC [Concomitant]
  5. VITAMIN B12 [Concomitant]
  6. ASTEROL (DIAMTHAZOLE) [Concomitant]

REACTIONS (4)
  - BLINDNESS UNILATERAL [None]
  - INFLAMMATION [None]
  - RETINAL DEPOSITS [None]
  - RETINAL DETACHMENT [None]
